FAERS Safety Report 9037972 (Version 1)
Quarter: 2013Q1

REPORT INFORMATION
  Report Type: Report from Study
  Country: PR (occurrence: PR)
  Receive Date: 20130129
  Receipt Date: 20130129
  Transmission Date: 20140127
  Serious: Yes (Hospitalization, Other)
  Sender: FDA-Public Use
  Company Number: PR-ABBOTT-11P-131-0885826-00

PATIENT
  Age: 33 Year
  Sex: Male
  Weight: 77.18 kg

DRUGS (1)
  1. HUMIRA 40 MG/0.8 ML PEN [Suspect]
     Indication: CROHN^S DISEASE
     Route: 058
     Dates: end: 201110

REACTIONS (2)
  - Intestinal perforation [Recovered/Resolved]
  - Bacterial infection [Unknown]
